FAERS Safety Report 7066461-7 (Version None)
Quarter: 2010Q4

REPORT INFORMATION
  Report Type: 
  Country: None (occurrence: None)
  Receive Date: 20101027
  Receipt Date: 20091204
  Transmission Date: 20110411
  Serious: No
  Sender: FDA-Public Use
  Company Number: US-WYE-H12530409

PATIENT
  Sex: Female

DRUGS (3)
  1. PREMPRO [Suspect]
     Indication: HORMONE THERAPY
     Dosage: 0.25MG-5MG
     Route: 048
     Dates: start: 20090601
  2. BENTYL [Concomitant]
  3. ALPRAZOLAM [Concomitant]

REACTIONS (4)
  - BREAST TENDERNESS [None]
  - PAIN IN EXTREMITY [None]
  - PRODUCT QUALITY ISSUE [None]
  - VOMITING [None]
